FAERS Safety Report 5585535-0 (Version None)
Quarter: 2008Q1

REPORT INFORMATION
  Report Type: 
  Country: None (occurrence: None)
  Receive Date: 20080109
  Receipt Date: 20080103
  Transmission Date: 20080703
  Serious: Yes (Other)
  Sender: FDA-Public Use
  Company Number: B0359785A

PATIENT
  Age: 42 Year
  Sex: Male

DRUGS (8)
  1. SEROXAT [Suspect]
     Route: 065
     Dates: start: 19981202
  2. DIAZEPAM [Concomitant]
     Indication: ANXIETY
     Route: 065
     Dates: start: 20001002
  3. TRAMADOL HCL [Concomitant]
  4. GABAPENTIN [Concomitant]
  5. MEBEVERINE [Concomitant]
  6. OMEPRAZOLE [Concomitant]
  7. ALFUZOSIN HCL [Concomitant]
  8. AMITRIPTYLINE HCL [Concomitant]
     Dates: start: 20001004

REACTIONS (12)
  - AGGRESSION [None]
  - AGORAPHOBIA [None]
  - BLINDNESS [None]
  - CLAUSTROPHOBIA [None]
  - DRUG WITHDRAWAL SYNDROME [None]
  - FEAR [None]
  - NERVOUSNESS [None]
  - PARANOIA [None]
  - SENSORY DISTURBANCE [None]
  - SUICIDAL IDEATION [None]
  - SUICIDE ATTEMPT [None]
  - TREMOR [None]
